FAERS Safety Report 10913065 (Version 1)
Quarter: 2015Q1

REPORT INFORMATION
  Report Type: Spontaneous
  Country: IT (occurrence: IT)
  Receive Date: 20150313
  Receipt Date: 20150313
  Transmission Date: 20150721
  Serious: Yes (Hospitalization)
  Sender: FDA-Public Use
  Company Number: IT-PFIZER INC-2015090577

PATIENT
  Age: 70 Year
  Sex: Female

DRUGS (2)
  1. CEFODOX [Suspect]
     Active Substance: CEFPODOXIME PROXETIL
     Indication: PYREXIA
     Dosage: 2 DF, DAILY
     Dates: start: 20140924, end: 20140928
  2. PARACETAMOL [Concomitant]
     Active Substance: ACETAMINOPHEN
     Dosage: UNK

REACTIONS (2)
  - Pneumonia [Recovering/Resolving]
  - Drug ineffective [Unknown]

NARRATIVE: CASE EVENT DATE: 20140928
